FAERS Safety Report 4582417-8 (Version None)
Quarter: 2005Q1

REPORT INFORMATION
  Report Type: 
  Country: None (occurrence: None)
  Receive Date: 20050119
  Receipt Date: 20040726
  Transmission Date: 20050727
  Serious: Yes (Other)
  Sender: FDA-Public Use
  Company Number: US-JNJFOC-20040505837

PATIENT
  Age: 60 Year
  Sex: Female
  Weight: 73.0291 kg

DRUGS (6)
  1. DOXIL [Suspect]
     Indication: BREAST CANCER
     Dosage: 93 MG, 1 IN 4 WEEK, INTRAVENOUS
     Route: 042
     Dates: start: 20040310, end: 20040505
  2. PREVACID [Concomitant]
  3. DECADRON [Concomitant]
  4. ZOMETA [Concomitant]
  5. ANZEMET (DOLASETRON MESILATE) [Concomitant]
  6. AREDIA [Concomitant]

REACTIONS (2)
  - BREAST CANCER [None]
  - PALMAR-PLANTAR ERYTHRODYSAESTHESIA SYNDROME [None]
